FAERS Safety Report 25926081 (Version 1)
Quarter: 2025Q4

REPORT INFORMATION
  Report Type: Spontaneous
  Country: AU (occurrence: AU)
  Receive Date: 20251015
  Receipt Date: 20251015
  Transmission Date: 20260117
  Serious: Yes (Death, Hospitalization, Other)
  Sender: Kenvue
  Company Number: AU-KENVUE-20251005448

PATIENT

DRUGS (1)
  1. ACETAMINOPHEN [Suspect]
     Active Substance: ACETAMINOPHEN
     Indication: Product used for unknown indication
     Dosage: UNK
     Route: 065

REACTIONS (4)
  - Toxicity to various agents [Fatal]
  - Drug-induced liver injury [Fatal]
  - Accidental poisoning [Fatal]
  - Poisoning deliberate [Fatal]
